FAERS Safety Report 10413858 (Version 1)
Quarter: 2014Q3

REPORT INFORMATION
  Report Type: Report from Study
  Country: US (occurrence: US)
  Receive Date: 20140827
  Receipt Date: 20140827
  Transmission Date: 20150326
  Serious: Yes (Disabling, Other)
  Sender: FDA-Public Use
  Company Number: US-TAKEDA-2014MPI002220

PATIENT
  Age: 73 Year
  Weight: 122.45 kg

DRUGS (1)
  1. VELCADE [Suspect]
     Active Substance: BORTEZOMIB
     Indication: PLASMA CELL MYELOMA
     Dosage: 3.1 MG, 1/WEEK
     Route: 058
     Dates: start: 20131217, end: 20140324

REACTIONS (3)
  - Back pain [Unknown]
  - Fall [Unknown]
  - Abasia [Unknown]

NARRATIVE: CASE EVENT DATE: 20140423
